FAERS Safety Report 7958836-6 (Version None)
Quarter: 2011Q4

REPORT INFORMATION
  Report Type: 
  Country: None (occurrence: None)
  Receive Date: 20111206
  Receipt Date: 20111128
  Transmission Date: 20120403
  Serious: Yes (Hospitalization, Other)
  Sender: FDA-Public Use
  Company Number: US-US-EMD SERONO, INC.-7072976

PATIENT
  Sex: Female

DRUGS (6)
  1. REBIF [Suspect]
     Route: 058
     Dates: start: 20110718
  2. IBUPROFEN [Concomitant]
     Indication: PAIN
     Dates: start: 20020101, end: 20110101
  3. CYMBALTA [Concomitant]
  4. NEURONTIN [Concomitant]
  5. REBIF [Suspect]
     Indication: MULTIPLE SCLEROSIS
     Route: 058
     Dates: start: 20100927, end: 20110621
  6. REBIF [Suspect]
     Route: 058

REACTIONS (6)
  - PNEUMONIA [None]
  - BASEDOW'S DISEASE [None]
  - ORAL CANDIDIASIS [None]
  - GASTRIC ULCER [None]
  - MULTIPLE SCLEROSIS RELAPSE [None]
  - INFLUENZA LIKE ILLNESS [None]
